FAERS Safety Report 25465855 (Version 2)
Quarter: 2025Q4

REPORT INFORMATION
  Report Type: Spontaneous
  Country: US (occurrence: US)
  Receive Date: 20250623
  Receipt Date: 20251008
  Transmission Date: 20260117
  Serious: No
  Sender: TOLMAR
  Company Number: US-Tolmar-TLM-2025-03001

PATIENT

DRUGS (4)
  1. ELIGARD [Suspect]
     Active Substance: LEUPROLIDE ACETATE
     Indication: Prostate cancer
     Dosage: DOSE NOT ADMINISTERED
     Route: 065
  2. ELIGARD [Suspect]
     Active Substance: LEUPROLIDE ACETATE
     Dosage: DOSE NOT ADMINISTERED
     Route: 065
  3. ELIGARD [Suspect]
     Active Substance: LEUPROLIDE ACETATE
     Dosage: DOSE ADMINISTERED
     Route: 065
  4. ELIGARD [Suspect]
     Active Substance: LEUPROLIDE ACETATE
     Indication: Prostate cancer
     Dosage: 30-SEP-2025;UNK;UNK
     Route: 065

REACTIONS (2)
  - Intercepted product administration error [Unknown]
  - Needle issue [Unknown]
